FAERS Safety Report 9893230 (Version 2)
Quarter: 2014Q1

REPORT INFORMATION
  Report Type: Report from Study
  Country: CL (occurrence: CL)
  Receive Date: 20140213
  Receipt Date: 20140219
  Transmission Date: 20141002
  Serious: Yes (Other)
  Sender: FDA-Public Use
  Company Number: PHHY2014CL017244

PATIENT
  Age: 53 Year
  Sex: Female

DRUGS (6)
  1. LEPONEX [Suspect]
     Indication: BIPOLAR DISORDER
     Dosage: 50 MG, QD (AT NIGHT)
     Route: 048
     Dates: start: 1998
  2. LEPONEX [Suspect]
     Indication: OFF LABEL USE
  3. ATEMPERATOR                             /CHL/ [Concomitant]
     Indication: DEPRESSION
     Dosage: 400 MG, TID
     Route: 048
     Dates: start: 1998
  4. TRADOX [Concomitant]
     Indication: DEPRESSION
     Dosage: 100 MG, BID (MORNING AND AFTERNOON)
     Route: 048
     Dates: start: 1998
  5. LEXAPRO [Concomitant]
     Indication: DEPRESSION
     Dosage: 5 UNK, UNK
     Route: 048
  6. LEXAPRO [Concomitant]
     Dosage: 10 MG, UNK
     Route: 048

REACTIONS (6)
  - Depression [Recovering/Resolving]
  - Contusion [Unknown]
  - Malaise [Unknown]
  - Psychiatric symptom [Unknown]
  - Tension [Unknown]
  - Headache [Recovered/Resolved]
